FAERS Safety Report 16227769 (Version 1)
Quarter: 2019Q2

REPORT INFORMATION
  Report Type: Spontaneous
  Country: IT (occurrence: IT)
  Receive Date: 20190423
  Receipt Date: 20190423
  Transmission Date: 20190711
  Serious: Yes (Other)
  Sender: FDA-Public Use
  Company Number: PHHY2019IT089689

PATIENT
  Age: 35 Year
  Sex: Female

DRUGS (1)
  1. ACETYLSALICYLIC ACID [Suspect]
     Active Substance: ASPIRIN
     Indication: PERICARDITIS
     Dosage: 500 MG, BID
     Route: 065

REACTIONS (4)
  - Product use in unapproved indication [Unknown]
  - Disease recurrence [Unknown]
  - Pericarditis [Unknown]
  - Maternal exposure during pregnancy [Unknown]
